FAERS Safety Report 9802814 (Version 1)
Quarter: 2014Q1

REPORT INFORMATION
  Report Type: Spontaneous
  Country: US (occurrence: None)
  Receive Date: 20140103
  Receipt Date: 20140103
  Transmission Date: 20141002
  Serious: Yes (Life-Threatening)
  Sender: FDA-Public Use
  Company Number: None

PATIENT
  Age: 85 Year
  Sex: Male

DRUGS (2)
  1. ENOXAPARIN [Suspect]
     Indication: DEEP VEIN THROMBOSIS
     Route: 058
     Dates: start: 20131221, end: 20131225
  2. ASPIRIN [Suspect]
     Indication: HYPERTENSION
     Route: 048
     Dates: start: 20131222, end: 20131225

REACTIONS (8)
  - Retroperitoneal haemorrhage [None]
  - Extravasation [None]
  - Coagulopathy [None]
  - International normalised ratio increased [None]
  - Platelet count decreased [None]
  - Haematocrit decreased [None]
  - Shock [None]
  - Multi-organ failure [None]
